FAERS Safety Report 9221715 (Version 1)
Quarter: 2013Q1

REPORT INFORMATION
  Report Type: Spontaneous
  Country: US (occurrence: None)
  Receive Date: 20120831
  Receipt Date: 20120831
  Transmission Date: 20140127
  Serious: No
  Sender: FDA-Public Use
  Company Number: 1000036827

PATIENT
  Age: 69 Year
  Sex: Female

DRUGS (9)
  1. DALIRESP [Suspect]
     Indication: CHRONIC OBSTRUCTIVE PULMONARY DISEASE
     Dosage: STOPPED
  2. ADVAIR [Suspect]
     Indication: CHRONIC OBSTRUCTIVE PULMONARY DISEASE
     Dosage: STOPPED 1 PUFF TWICE PER DAY?
     Route: 055
     Dates: start: 2007
  3. TRAMADOL HYDROCHLORIDE (TRAMADOL HYDROCHLORIDE) (TRAMADOL HYDROCHLORIDE) [Concomitant]
  4. ALPRAZOLAM (ALPRAZOLAM) (ALPRAZOLAM) [Concomitant]
  5. HYPROMELLOSE (HYPROMELLOSE) (HYPROMELLOSE) [Concomitant]
  6. OXYCODONE (OXYCODONE) (OXYCODONE) [Concomitant]
  7. MONTELUKAST SODIUM [Concomitant]
  8. ADVIL PM (IBUPROFEN, DIPHENHYDRAMINE HYDROCHLORIDE) (IBUPROFEN, DIPHENHYDRAMINE HYDROCHLORIDE) [Concomitant]
  9. DOXEPIN HYDROCHLORIDE (DOXEPIN HYDROCHLORIDE) (DOXEPIN HYDROCHLORIDE) [Concomitant]

REACTIONS (1)
  - Dizziness [None]
